FAERS Safety Report 25943148 (Version 1)
Quarter: 2025Q4

REPORT INFORMATION
  Report Type: Spontaneous
  Country: US (occurrence: None)
  Receive Date: 20251020
  Receipt Date: 20251020
  Transmission Date: 20260118
  Serious: Yes (Other)
  Sender: FDA-CTU
  Company Number: None

PATIENT
  Sex: Female

DRUGS (2)
  1. HUMIRA [Suspect]
     Active Substance: ADALIMUMAB
     Indication: Rheumatoid arthritis
     Dosage: FREQUENCY : EVEVRY OTHER WEEK?
     Route: 058
     Dates: start: 20240717
  2. FLUCONAZOLE TAB 150MG [Concomitant]

REACTIONS (3)
  - Activities of daily living decreased [None]
  - Discomfort [None]
  - Gallbladder disorder [None]
